FAERS Safety Report 14694668 (Version 4)
Quarter: 2018Q2

REPORT INFORMATION
  Report Type: Spontaneous
  Country: US (occurrence: US)
  Receive Date: 20180329
  Receipt Date: 20180504
  Transmission Date: 20180711
  Serious: No
  Sender: FDA-Public Use
  Company Number: US-PFIZER INC-2018130857

PATIENT
  Age: 78 Year
  Sex: Female
  Weight: 55.79 kg

DRUGS (4)
  1. ASPIRIN /00002701/ [Concomitant]
     Active Substance: ASPIRIN
     Indication: CEREBROVASCULAR ACCIDENT
     Dosage: 81 MG, 1X/DAY (AT NIGHT)
     Route: 048
     Dates: start: 2004
  2. KERYDIN [Suspect]
     Active Substance: TAVABOROLE
     Dosage: 1 GTT, 2X/DAY
     Dates: start: 201803
  3. FOLIC ACID. [Concomitant]
     Active Substance: FOLIC ACID
     Indication: CEREBROVASCULAR ACCIDENT
     Dosage: 1 MG, 1X/DAY (ONCE IN THE MORNING)
     Route: 048
     Dates: start: 2004
  4. KERYDIN [Suspect]
     Active Substance: TAVABOROLE
     Indication: ONYCHOMYCOSIS
     Dosage: 1 GTT, 2X/DAY
     Dates: start: 201801

REACTIONS (2)
  - Onychomycosis [Unknown]
  - Onycholysis [Unknown]

NARRATIVE: CASE EVENT DATE: 20180326
